FAERS Safety Report 24270818 (Version 2)
Quarter: 2025Q2

REPORT INFORMATION
  Report Type: Spontaneous
  Country: CA (occurrence: CA)
  Receive Date: 20240831
  Receipt Date: 20250505
  Transmission Date: 20250716
  Serious: Yes (Other)
  Sender: CELLTRION
  Company Number: CA-CELLTRION INC.-2024CA020590

PATIENT

DRUGS (18)
  1. YUFLYMA [Suspect]
     Active Substance: ADALIMUMAB-AATY
     Indication: Hidradenitis
  2. YUFLYMA [Suspect]
     Active Substance: ADALIMUMAB-AATY
     Dates: start: 20240202, end: 20240202
  3. ATORVASTATIN [Concomitant]
     Active Substance: ATORVASTATIN
     Dates: start: 2018
  4. BISOPROLOL [Concomitant]
     Active Substance: BISOPROLOL
     Dates: start: 2018
  5. CLINDAMYCIN [Concomitant]
     Active Substance: CLINDAMYCIN
     Dates: start: 20240809
  6. CLOBETASOL [Concomitant]
     Active Substance: CLOBETASOL
     Dates: start: 20230825
  7. DOXYCYCLINE [Concomitant]
     Active Substance: DOXYCYCLINE
     Dates: start: 20230825
  8. GLICLAZIDE [Concomitant]
     Active Substance: GLICLAZIDE
     Dates: start: 2018
  9. JARDIANCE [Concomitant]
     Active Substance: EMPAGLIFLOZIN
     Dates: start: 2018
  10. VITAMINS NOS [Concomitant]
     Active Substance: VITAMINS
     Dates: start: 2019
  11. RIFAMPIN [Concomitant]
     Active Substance: RIFAMPIN
     Dates: start: 20240809
  12. SENNA [Concomitant]
     Active Substance: SENNOSIDES
     Dates: start: 2018
  13. TRADJENTA [Concomitant]
     Active Substance: LINAGLIPTIN
     Dates: start: 2018
  14. CYANOCOBALAMIN [Concomitant]
     Active Substance: CYANOCOBALAMIN
     Dates: start: 2019
  15. VITAMIN D3 [Concomitant]
     Active Substance: CHOLECALCIFEROL
     Dates: start: 2019
  16. CYANOCOBALAMIN [Concomitant]
     Active Substance: CYANOCOBALAMIN
  17. LINAGLIPTIN [Concomitant]
     Active Substance: LINAGLIPTIN
  18. VITAMINS NOS [Concomitant]
     Active Substance: VITAMINS

REACTIONS (2)
  - Sweat gland excision [Recovered/Resolved]
  - Drug ineffective [Recovered/Resolved]

NARRATIVE: CASE EVENT DATE: 20240704
